FAERS Safety Report 8055713-X (Version None)
Quarter: 2012Q1

REPORT INFORMATION
  Report Type: 
  Country: None (occurrence: None)
  Receive Date: 20120119
  Receipt Date: 20120112
  Transmission Date: 20120608
  Serious: Yes (Hospitalization)
  Sender: FDA-Public Use
  Company Number: FR-PFIZER INC-2012008914

PATIENT
  Age: 41 Year
  Sex: Female

DRUGS (7)
  1. CELESTAMINE TAB [Suspect]
     Dosage: UNK
     Route: 048
     Dates: start: 20110624, end: 20110701
  2. IBUPROFEN (ADVIL) [Suspect]
     Dosage: 400 MG, 2X/DAY
     Route: 048
     Dates: start: 20110706, end: 20110710
  3. EBASTINE [Suspect]
     Dosage: UNK
     Route: 048
     Dates: start: 20110624, end: 20110701
  4. AMOXICILLIN TRIHYDRATE [Suspect]
     Dosage: 2 G, 1X/DAY
     Route: 048
     Dates: start: 20110709, end: 20110712
  5. DAFLON [Suspect]
     Dosage: 500 MG, 4X/DAY
     Route: 048
     Dates: start: 20110701
  6. AMINO ACIDS/MINERALS/VITAMINS [Suspect]
     Dosage: UNK
     Route: 048
     Dates: start: 20110501, end: 20110705
  7. ACETAMINOPHEN [Suspect]
     Dosage: UNK
     Route: 065
     Dates: start: 20110701

REACTIONS (5)
  - PERICARDITIS [None]
  - ARTHRALGIA [None]
  - EOSINOPHILIA [None]
  - PYREXIA [None]
  - MYALGIA [None]
